FAERS Safety Report 6921815-1 (Version None)
Quarter: 2010Q3

REPORT INFORMATION
  Report Type: 
  Country: None (occurrence: None)
  Receive Date: 20100812
  Receipt Date: 20100730
  Transmission Date: 20110219
  Serious: Yes (Other)
  Sender: FDA-Public Use
  Company Number: JP-PFIZER INC-2010095929

PATIENT
  Sex: Female

DRUGS (2)
  1. GABAPEN [Suspect]
  2. LYRICA [Suspect]
     Dosage: 75 MG, 3X/DAY
     Route: 048

REACTIONS (2)
  - DIZZINESS [None]
  - HERPES ZOSTER [None]
